FAERS Safety Report 6920341-3 (Version None)
Quarter: 2010Q3

REPORT INFORMATION
  Report Type: 
  Country: None (occurrence: None)
  Receive Date: 20100730
  Receipt Date: 20090916
  Transmission Date: 20110219
  Serious: Yes (Hospitalization)
  Sender: FDA-Public Use
  Company Number: US-000887

PATIENT
  Age: 12 Year
  Sex: Male

DRUGS (3)
  1. HUMAN GROWTH HORMONE, RECOMBINANT [Suspect]
     Indication: GROWTH HORMONE DEFICIENCY
     Dosage: 0.05 MG/KG
  2. LEVOTHYROXINE SODIUM [Concomitant]
  3. CALCIFEROL [Concomitant]

REACTIONS (1)
  - PANCREATITIS ACUTE [None]
